FAERS Safety Report 7017453-5 (Version None)
Quarter: 2010Q3

REPORT INFORMATION
  Report Type: 
  Country: None (occurrence: None)
  Receive Date: 20100928
  Receipt Date: 20100917
  Transmission Date: 20110219
  Serious: Yes (Other)
  Sender: FDA-Public Use
  Company Number: BR-PFIZER INC-2010038191

PATIENT
  Age: 32 Year
  Sex: Female
  Weight: 62 kg

DRUGS (8)
  1. ZOLOFT [Suspect]
     Indication: BIPOLAR DISORDER
     Dosage: 50 MG, 1X/DAY
     Route: 048
     Dates: start: 20090101
  2. ZOLOFT [Suspect]
     Indication: DEPRESSION
  3. ZOLOFT [Suspect]
     Indication: ANXIETY
  4. RIVOTRIL [Concomitant]
     Dosage: UNK
  5. PENTOBARBITAL [Concomitant]
     Dosage: UNK
  6. TRILEPTAL [Concomitant]
     Dosage: UNK
  7. SYNTHROID [Concomitant]
     Indication: THYROID DISORDER
     Dosage: UNK
  8. ROHYPNOL [Concomitant]
     Dosage: UNK

REACTIONS (5)
  - ANOREXIA NERVOSA [None]
  - INCREASED APPETITE [None]
  - VISUAL IMPAIRMENT [None]
  - WEIGHT DECREASED [None]
  - WEIGHT INCREASED [None]
